FAERS Safety Report 16091409 (Version 4)
Quarter: 2019Q2

REPORT INFORMATION
  Report Type: Spontaneous
  Country: US (occurrence: US)
  Receive Date: 20190319
  Receipt Date: 20190422
  Transmission Date: 20190711
  Serious: No
  Sender: FDA-Public Use
  Company Number: US-SA-2019SA073965

PATIENT
  Age: 40 Year
  Sex: Female

DRUGS (6)
  1. LOSARTAN POTASSIUM. [Concomitant]
     Active Substance: LOSARTAN POTASSIUM
  2. RESTASIS [Concomitant]
     Active Substance: CYCLOSPORINE
  3. KEVZARA [Suspect]
     Active Substance: SARILUMAB
     Dosage: 200 MG, QOW
     Route: 058
     Dates: start: 20190227
  4. AMLODIPINE [Concomitant]
     Active Substance: AMLODIPINE BESYLATE
  5. ATENOLOL. [Concomitant]
     Active Substance: ATENOLOL
  6. TRAMADOL HCL [Concomitant]
     Active Substance: TRAMADOL HYDROCHLORIDE

REACTIONS (16)
  - Depression [Not Recovered/Not Resolved]
  - Pruritus [Unknown]
  - Fatigue [Not Recovered/Not Resolved]
  - Rash pruritic [Unknown]
  - Skin exfoliation [Unknown]
  - Musculoskeletal stiffness [Not Recovered/Not Resolved]
  - Injection site erythema [Not Recovered/Not Resolved]
  - Injection site pruritus [Recovered/Resolved]
  - Insomnia [Not Recovered/Not Resolved]
  - Skin discolouration [Unknown]
  - Decreased appetite [Not Recovered/Not Resolved]
  - Abdominal discomfort [Unknown]
  - Rash [Unknown]
  - Pain [Not Recovered/Not Resolved]
  - Swelling [Unknown]
  - Injection site rash [Recovered/Resolved]
